FAERS Safety Report 10508962 (Version 1)
Quarter: 2014Q3

REPORT INFORMATION
  Report Type: Spontaneous
  Country: US (occurrence: None)
  Receive Date: 20140915
  Receipt Date: 20140915
  Transmission Date: 20150326
  Serious: Yes (Hospitalization, Other)
  Sender: FDA-Public Use
  Company Number: 2014-US-008583

PATIENT
  Age: 43 Year
  Sex: Female

DRUGS (3)
  1. XANAX [Suspect]
     Active Substance: ALPRAZOLAM
     Indication: ANXIETY
  2. XYREM [Suspect]
     Active Substance: SODIUM OXYBATE
     Indication: SLEEP DISORDER
     Route: 048
     Dates: start: 201210, end: 2012
  3. XYREM [Suspect]
     Active Substance: SODIUM OXYBATE
     Indication: INSOMNIA
     Route: 048
     Dates: start: 201210, end: 2012

REACTIONS (7)
  - Overdose [None]
  - Incontinence [None]
  - Off label use [None]
  - Malaise [None]
  - Unresponsive to stimuli [None]
  - Incoherent [None]
  - Stress [None]

NARRATIVE: CASE EVENT DATE: 20140708
